FAERS Safety Report 5700893-1 (Version None)
Quarter: 2008Q2

REPORT INFORMATION
  Report Type: 
  Country: None (occurrence: None)
  Receive Date: 20080410
  Receipt Date: 20080402
  Transmission Date: 20081010
  Serious: Yes (Hospitalization)
  Sender: FDA-Public Use
  Company Number: A0719205A

PATIENT
  Age: 58 Year
  Sex: Female
  Weight: 47.2 kg

DRUGS (6)
  1. LAPATINIB [Suspect]
     Dosage: 1250MG PER DAY
     Route: 048
     Dates: start: 20070112
  2. CAPECITABINE [Suspect]
     Dosage: 1000MG TWICE PER DAY
     Route: 048
     Dates: start: 20070112
  3. LYRICA [Concomitant]
     Dosage: 75MG TWICE PER DAY
     Route: 048
     Dates: start: 20070925
  4. PREVACID [Concomitant]
     Indication: ILL-DEFINED DISORDER
     Dosage: 30MG FOUR TIMES PER DAY
     Route: 048
  5. ATENOLOL [Concomitant]
     Indication: HYPERTENSION
     Dosage: 25MG PER DAY
     Route: 048
  6. PAXIL [Concomitant]
     Indication: ANTIDEPRESSANT THERAPY
     Dosage: 10MG PER DAY
     Route: 048

REACTIONS (3)
  - DYSPHAGIA [None]
  - LARYNGEAL OPERATION [None]
  - VOCAL CORD PARALYSIS [None]
